FAERS Safety Report 7984235 (Version 2)
Quarter: 2015Q1

REPORT INFORMATION
  Report Type: Report from Study
  Country: JP (occurrence: JP)
  Receive Date: 20110609
  Receipt Date: 20150122
  Transmission Date: 20150721
  Serious: Yes (Death)
  Sender: FDA-Public Use
  Company Number: PHHO2007JP15264

PATIENT
  Age: 65 Year
  Sex: Female

DRUGS (5)
  1. AROMASIN [Concomitant]
     Active Substance: EXEMESTANE
     Indication: PRODUCT USED FOR UNKNOWN INDICATION
     Dosage: UNK
     Route: 065
     Dates: start: 20070327, end: 20070618
  2. CGS 20267 [Suspect]
     Active Substance: LETROZOLE
     Indication: BREAST CANCER
     Dosage: 2.5 MG, QD
     Route: 048
     Dates: start: 20070629
  3. DIOVAN [Concomitant]
     Active Substance: VALSARTAN
     Dosage: 20 MG, UNK
     Route: 048
  4. DIOVAN [Concomitant]
     Active Substance: VALSARTAN
     Dosage: 60 MG, UNK
     Route: 048
  5. DIOVAN [Concomitant]
     Active Substance: VALSARTAN
     Indication: HYPERTENSION
     Dosage: 50 MG, UNK
     Route: 048
     Dates: start: 20070629

REACTIONS (2)
  - Malignant neoplasm progression [Fatal]
  - Breast cancer [Fatal]

NARRATIVE: CASE EVENT DATE: 20070719
